FAERS Safety Report 4919114-2 (Version None)
Quarter: 2006Q1

REPORT INFORMATION
  Report Type: 
  Country: None (occurrence: None)
  Receive Date: 20060216
  Receipt Date: 20060202
  Transmission Date: 20060701
  Serious: Yes (Congenital Anomaly)
  Sender: FDA-Public Use
  Company Number: 2006-138274-NL

PATIENT
  Sex: Male

DRUGS (4)
  1. PUREGON [Suspect]
  2. HUMEGON [Suspect]
  3. PREGNYL [Suspect]
  4. CLOMIPHENE [Suspect]

REACTIONS (9)
  - ANAPLASTIC ASTROCYTOMA [None]
  - CAPUT SUCCEDANEUM [None]
  - CEPHALHAEMATOMA [None]
  - CONGENITAL CENTRAL NERVOUS SYSTEM ANOMALY [None]
  - DRUG EXPOSURE DURING PREGNANCY [None]
  - FEEDING DISORDER NEONATAL [None]
  - HAEMORRHAGE [None]
  - HYDROCEPHALUS [None]
  - IRRITABILITY [None]
